FAERS Safety Report 5959123-8 (Version None)
Quarter: 2008Q4

REPORT INFORMATION
  Report Type: 
  Country: None (occurrence: None)
  Receive Date: 20081120
  Receipt Date: 20080115
  Transmission Date: 20090506
  Serious: No
  Sender: FDA-Public Use
  Company Number: A0703342A

PATIENT
  Age: 38 Year
  Sex: Female

DRUGS (2)
  1. BUPROPION HCL [Suspect]
     Indication: SEASONAL AFFECTIVE DISORDER
     Dosage: 150MG IN THE MORNING
     Route: 048
     Dates: start: 20071213, end: 20071221
  2. MULTIVITAMIN CHEWABLE [Concomitant]

REACTIONS (5)
  - BLEPHAROSPASM [None]
  - DIZZINESS [None]
  - INSOMNIA [None]
  - PALPITATIONS [None]
  - PRODUCT QUALITY ISSUE [None]
